FAERS Safety Report 6293089-9 (Version None)
Quarter: 2009Q3

REPORT INFORMATION
  Report Type: 
  Country: None (occurrence: None)
  Receive Date: 20090731
  Receipt Date: 20090729
  Transmission Date: 20100115
  Serious: Yes (Other)
  Sender: FDA-Public Use
  Company Number: CH-BRISTOL-MYERS SQUIBB COMPANY-14721211

PATIENT
  Age: 36 Year
  Sex: Female

DRUGS (6)
  1. TRITTICO [Suspect]
     Indication: SLEEP DISORDER
     Route: 048
     Dates: start: 20090324
  2. TRITTICO [Suspect]
     Indication: ANXIETY
     Route: 048
     Dates: start: 20090324
  3. CITALOPRAM [Suspect]
     Indication: ANXIETY DISORDER
     Dosage: REDUCED ON 13MAY09
     Route: 048
     Dates: start: 20080901
  4. CITALOPRAM [Suspect]
     Indication: DEPRESSION
     Dosage: REDUCED ON 13MAY09
     Route: 048
     Dates: start: 20080901
  5. SOTALOL HCL [Concomitant]
     Indication: HYPERTENSION
     Dates: start: 20090101
  6. SEROQUEL [Concomitant]
     Indication: MAJOR DEPRESSION
     Dates: start: 20040101

REACTIONS (2)
  - NEPHROLITHIASIS [None]
  - URINARY RETENTION [None]
